FAERS Safety Report 6088106-5 (Version None)
Quarter: 2009Q1

REPORT INFORMATION
  Report Type: 
  Country: None (occurrence: None)
  Receive Date: 20090220
  Receipt Date: 20090205
  Transmission Date: 20090719
  Serious: Yes (Death)
  Sender: FDA-Public Use
  Company Number: AE2009-009

PATIENT
  Age: 50 Year
  Sex: Male

DRUGS (1)
  1. FAZACLO ODT [Suspect]
     Dosage: 500 MG DAILY PO
     Route: 048
     Dates: start: 20051118, end: 20081220

REACTIONS (1)
  - PNEUMONIA [None]
